FAERS Safety Report 6865650-1 (Version None)
Quarter: 2010Q3

REPORT INFORMATION
  Report Type: 
  Country: None (occurrence: None)
  Receive Date: 20100720
  Receipt Date: 20100706
  Transmission Date: 20110219
  Serious: Yes (Death)
  Sender: FDA-Public Use
  Company Number: 633808

PATIENT
  Age: 63 Year
  Sex: Female

DRUGS (4)
  1. CYTARABINE [Suspect]
     Indication: ACUTE MYELOID LEUKAEMIA
     Dates: start: 20080219
  2. IDARUBICIN HCL [Suspect]
     Indication: ACUTE MYELOID LEUKAEMIA
     Dates: start: 20080219
  3. CEFTRIAXONE [Concomitant]
  4. ITRACONAZOLE [Concomitant]

REACTIONS (12)
  - ABDOMINAL PAIN LOWER [None]
  - CAECITIS [None]
  - ENTEROCOCCAL INFECTION [None]
  - FEBRILE NEUTROPENIA [None]
  - HAEMATOCHEZIA [None]
  - INTESTINAL DILATATION [None]
  - MUCORMYCOSIS [None]
  - MUCOSAL NECROSIS [None]
  - NEUTROPENIC COLITIS [None]
  - SEPTIC SHOCK [None]
  - SINUSITIS [None]
  - SYNCOPE [None]
